FAERS Safety Report 12485485 (Version 1)
Quarter: 2016Q2

REPORT INFORMATION
  Report Type: Spontaneous
  Country: US (occurrence: US)
  Receive Date: 20160621
  Receipt Date: 20160621
  Transmission Date: 20160815
  Serious: No
  Sender: FDA-Public Use
  Company Number: US-SA-2016SA042227

PATIENT
  Age: 11 Year
  Sex: Male
  Weight: 39 kg

DRUGS (11)
  1. EPIPEN [Concomitant]
     Active Substance: EPINEPHRINE
     Indication: ANAPHYLACTIC REACTION
     Route: 030
     Dates: start: 20160218
  2. LEXAPRO [Concomitant]
     Active Substance: ESCITALOPRAM OXALATE
     Route: 048
     Dates: start: 20150930
  3. DIPHENHYDRAMINE. [Concomitant]
     Active Substance: DIPHENHYDRAMINE
     Indication: ANAPHYLACTIC REACTION
     Dosage: DOSE:2.5 MILLIGRAM(S)/MILLILITRE
     Route: 042
     Dates: start: 20160218
  4. NORMAL SALINE [Concomitant]
     Active Substance: SODIUM CHLORIDE
     Indication: FLUSHING
     Dates: start: 20160218
  5. L-M-X [Concomitant]
     Indication: PREMEDICATION
     Dates: start: 20160218
  6. HEPARIN [Concomitant]
     Active Substance: HEPARIN SODIUM
     Indication: FLUSHING
     Dosage: DOSE:100 UNIT(S)
     Route: 042
     Dates: start: 20160218
  7. LANTUS [Concomitant]
     Active Substance: INSULIN GLARGINE
     Dosage: EVERY EVENING DOSE:7 UNIT(S)
     Route: 058
     Dates: start: 20150219
  8. CEREZYME [Suspect]
     Active Substance: IMIGLUCERASE
     Indication: LIPIDOSIS
     Dosage: DOSE:61.53 UNIT(S)/KILOGRAM BODYWEIGHT
     Route: 042
  9. CEREZYME [Suspect]
     Active Substance: IMIGLUCERASE
     Indication: GAUCHER^S DISEASE
     Dosage: DOSE:61.53 UNIT(S)/KILOGRAM BODYWEIGHT
     Route: 042
  10. HUMALOG [Concomitant]
     Active Substance: INSULIN LISPRO
     Dosage: DOSE:1 UNIT(S)
     Route: 058
     Dates: start: 20150219
  11. LIDOCAINE/PRILOCAINE [Concomitant]
     Indication: PREMEDICATION
     Dates: start: 20160218

REACTIONS (3)
  - Gastroenteritis viral [Recovering/Resolving]
  - Diarrhoea [Recovering/Resolving]
  - Vomiting [Recovering/Resolving]
